FAERS Safety Report 7058093-1 (Version None)
Quarter: 2010Q4

REPORT INFORMATION
  Report Type: 
  Country: None (occurrence: None)
  Receive Date: 20101022
  Receipt Date: 20101008
  Transmission Date: 20110411
  Serious: Yes (Other)
  Sender: FDA-Public Use
  Company Number: GB-GENENTECH-304362

PATIENT
  Sex: Female

DRUGS (6)
  1. LUCENTIS [Suspect]
     Indication: MACULAR DEGENERATION
     Dosage: 500 A?G, UNK
     Route: 031
     Dates: start: 20100701, end: 20100705
  2. LUCENTIS [Suspect]
     Indication: CHOROIDAL NEOVASCULARISATION
  3. ATENOLOL [Concomitant]
     Indication: PRODUCT USED FOR UNKNOWN INDICATION
     Dosage: UNK
  4. BENDROFLUMETHIAZIDE [Concomitant]
     Indication: PRODUCT USED FOR UNKNOWN INDICATION
  5. ASPIRIN [Concomitant]
     Indication: PRODUCT USED FOR UNKNOWN INDICATION
     Dosage: UNK
  6. TAMOXIFEN CITRATE [Concomitant]
     Indication: PRODUCT USED FOR UNKNOWN INDICATION
     Dosage: UNK

REACTIONS (5)
  - DRUG HYPERSENSITIVITY [None]
  - ENDOPHTHALMITIS [None]
  - STREPTOCOCCUS TEST POSITIVE [None]
  - VISUAL ACUITY REDUCED [None]
  - VITREOUS FLOATERS [None]
